FAERS Safety Report 12747227 (Version 2)
Quarter: 2016Q4

REPORT INFORMATION
  Report Type: Report from Study
  Country: GB (occurrence: GB)
  Receive Date: 20160915
  Receipt Date: 20161017
  Transmission Date: 20170207
  Serious: Yes (Life-Threatening)
  Sender: FDA-Public Use
  Company Number: GB-CELGENEUS-GBR-2016090468

PATIENT
  Age: 69 Year
  Sex: Female
  Weight: 53.7 kg

DRUGS (6)
  1. CARFILZOMIB [Suspect]
     Active Substance: CARFILZOMIB
     Dosage: 20/36 MG/M2
     Route: 041
     Dates: start: 20160823
  2. ROMIDEPSIN [Suspect]
     Active Substance: ROMIDEPSIN
     Route: 041
     Dates: start: 20160823
  3. ROMIDEPSIN [Suspect]
     Active Substance: ROMIDEPSIN
     Indication: PERIPHERAL T-CELL LYMPHOMA UNSPECIFIED
     Route: 041
     Dates: start: 20160613, end: 20160823
  4. CARFILZOMIB [Suspect]
     Active Substance: CARFILZOMIB
     Indication: PERIPHERAL T-CELL LYMPHOMA UNSPECIFIED
     Route: 041
     Dates: start: 20160613, end: 20160824
  5. CARFILZOMIB [Suspect]
     Active Substance: CARFILZOMIB
     Dosage: 20/36 MG/M2
     Route: 041
  6. ROMIDEPSIN [Suspect]
     Active Substance: ROMIDEPSIN
     Route: 041

REACTIONS (1)
  - Pulmonary embolism [Unknown]

NARRATIVE: CASE EVENT DATE: 20160831
